FAERS Safety Report 17672865 (Version 1)
Quarter: 2020Q2

REPORT INFORMATION
  Report Type: Spontaneous
  Country: FR (occurrence: FR)
  Receive Date: 20200415
  Receipt Date: 20200415
  Transmission Date: 20200713
  Serious: Yes (Death, Other)
  Sender: FDA-Public Use
  Company Number: FR-MYLANLABS-2020M1038783

PATIENT
  Age: 67 Year
  Sex: Male
  Weight: 75 kg

DRUGS (3)
  1. CARBOPLATIN. [Suspect]
     Active Substance: CARBOPLATIN
     Indication: LUNG ADENOCARCINOMA STAGE IV
     Dosage: 450 MILLIGRAM, CYCLE
     Route: 042
     Dates: start: 20200124, end: 20200124
  2. ALIMTA [Suspect]
     Active Substance: PEMETREXED DISODIUM
     Indication: LUNG ADENOCARCINOMA STAGE IV
     Dosage: 1000 MILLIGRAM, CYCLE
     Route: 042
     Dates: start: 20191227, end: 20200124
  3. PEMBROLIZUMAB. [Suspect]
     Active Substance: PEMBROLIZUMAB
     Indication: LUNG ADENOCARCINOMA STAGE IV
     Dosage: 200 MILLIGRAM, CYCLE
     Route: 042
     Dates: start: 20191227, end: 20200124

REACTIONS (2)
  - Interstitial lung disease [Fatal]
  - Bone marrow failure [Recovered/Resolved with Sequelae]

NARRATIVE: CASE EVENT DATE: 20200205
